FAERS Safety Report 6467696-4 (Version None)
Quarter: 2009Q4

REPORT INFORMATION
  Report Type: 
  Country: None (occurrence: None)
  Receive Date: 20091127
  Receipt Date: 20091112
  Transmission Date: 20100525
  Serious: Yes (Hospitalization)
  Sender: FDA-Public Use
  Company Number: 2009002813

PATIENT
  Age: 81 Year
  Sex: Male
  Weight: 47.2 kg

DRUGS (4)
  1. ERLOTINIB HYDROCHLORIDE [Suspect]
     Indication: LUNG ADENOCARCINOMA
     Dosage: 150 MG,QD,ORAL
     Route: 048
     Dates: start: 20090224, end: 20090729
  2. NORVASC [Suspect]
     Indication: HYPERTENSION
     Dosage: 2.5 MG, QD, ORAL
     Route: 048
  3. CEROCRAL (IFENPRODIL TARTRATE) [Concomitant]
  4. DIAZEPAM [Concomitant]

REACTIONS (9)
  - ATELECTASIS [None]
  - BULLOUS LUNG DISEASE [None]
  - DECREASED APPETITE [None]
  - GENERAL PHYSICAL HEALTH DETERIORATION [None]
  - LYMPHADENOPATHY [None]
  - MALIGNANT NEOPLASM PROGRESSION [None]
  - PLEURAL EFFUSION [None]
  - PNEUMONIA [None]
  - PULMONARY BULLA [None]
